FAERS Safety Report 15794297 (Version 1)
Quarter: 2019Q1

REPORT INFORMATION
  Report Type: Spontaneous
  Country: CN (occurrence: CN)
  Receive Date: 20190107
  Receipt Date: 20190107
  Transmission Date: 20190417
  Serious: Yes (Hospitalization)
  Sender: FDA-Public Use
  Company Number: CN-PFIZER INC-2019001049

PATIENT
  Age: 20 Year
  Sex: Female
  Weight: 38 kg

DRUGS (5)
  1. CYTOSAR [Suspect]
     Active Substance: CYTARABINE
     Dosage: 0.1 G, 2X/DAY
     Route: 041
     Dates: start: 20181020, end: 20181026
  2. AI NUO NING [Suspect]
     Active Substance: IDARUBICIN HYDROCHLORIDE
     Dosage: 10 MG, 1X/DAY
     Route: 041
     Dates: start: 20181021, end: 20181022
  3. SODIUM CHLORIDE. [Concomitant]
     Active Substance: SODIUM CHLORIDE
     Indication: VEHICLE SOLUTION USE
     Dosage: 250 ML, 1X/DAY
     Route: 041
     Dates: start: 20181020, end: 20181022
  4. SODIUM CHLORIDE. [Concomitant]
     Active Substance: SODIUM CHLORIDE
     Indication: VEHICLE SOLUTION USE
     Dosage: 500 ML, 2X/DAY
     Route: 041
     Dates: start: 20181020, end: 20181026
  5. AI NUO NING [Suspect]
     Active Substance: IDARUBICIN HYDROCHLORIDE
     Dosage: 20 MG, 1X/DAY
     Route: 041
     Dates: start: 20181020, end: 20181020

REACTIONS (7)
  - Nausea [Not Recovered/Not Resolved]
  - Cytopenia [Not Recovered/Not Resolved]
  - Headache [Not Recovered/Not Resolved]
  - Rash [Not Recovered/Not Resolved]
  - Vomiting [Not Recovered/Not Resolved]
  - Pruritus [Not Recovered/Not Resolved]
  - Dizziness [Not Recovered/Not Resolved]

NARRATIVE: CASE EVENT DATE: 20181023
